FAERS Safety Report 6487678-6 (Version None)
Quarter: 2009Q4

REPORT INFORMATION
  Report Type: 
  Country: None (occurrence: None)
  Receive Date: 20091123
  Receipt Date: 20090930
  Transmission Date: 20100525
  Serious: No
  Sender: FDA-Public Use
  Company Number: 8052496

PATIENT
  Age: 61 Year
  Sex: Female
  Weight: 50.3 kg

DRUGS (5)
  1. CIMZIA [Suspect]
     Indication: CROHN'S DISEASE
     Dosage: 400 MG SC
     Route: 058
     Dates: start: 20090408
  2. FOSAMAX [Concomitant]
  3. CYMBALTA [Concomitant]
  4. CHLORPHENIRAMINE MALEATE [Concomitant]
  5. AMBIEN CR [Concomitant]

REACTIONS (4)
  - EYE PAIN [None]
  - RHINORRHOEA [None]
  - SINUS HEADACHE [None]
  - SINUSITIS [None]
